FAERS Safety Report 11500734 (Version 2)
Quarter: 2015Q4

REPORT INFORMATION
  Report Type: Report from Study
  Country: JP (occurrence: JP)
  Receive Date: 20150914
  Receipt Date: 20151005
  Transmission Date: 20160304
  Serious: Yes (Other)
  Sender: FDA-Public Use
  Company Number: JP-OTSUKA-2015_009069

PATIENT

DRUGS (4)
  1. ALBUMIN BEHRING [Suspect]
     Active Substance: ALBUMIN (HUMAN)
     Indication: OEDEMA DUE TO HEPATIC DISEASE
     Dosage: 20 G/DAY
     Route: 042
     Dates: start: 20150513, end: 20150515
  2. LASIX M [Suspect]
     Active Substance: FUROSEMIDE
     Indication: FLUID RETENTION
     Dosage: 20 MG/DAY
     Route: 048
     Dates: start: 20150514
  3. TOLVAPTAN [Suspect]
     Active Substance: TOLVAPTAN
     Indication: OEDEMA DUE TO HEPATIC DISEASE
     Dosage: 3.75 MG, QD
     Route: 048
     Dates: start: 20150518, end: 20150522
  4. FUROSEMIDE. [Suspect]
     Active Substance: FUROSEMIDE
     Indication: FLUID RETENTION
     Dosage: 10 MG/DAY
     Route: 042
     Dates: start: 20150513, end: 20150515

REACTIONS (3)
  - Hepatic encephalopathy [Recovering/Resolving]
  - Dehydration [None]
  - Condition aggravated [None]

NARRATIVE: CASE EVENT DATE: 20150520
